FAERS Safety Report 25017244 (Version 1)
Quarter: 2025Q1

REPORT INFORMATION
  Report Type: Spontaneous
  Country: US (occurrence: None)
  Receive Date: 20250226
  Receipt Date: 20250226
  Transmission Date: 20250409
  Serious: Yes (Other)
  Sender: FDA-CTU
  Company Number: None

PATIENT
  Age: 0 Year
  Sex: Male
  Weight: 2.49 kg

DRUGS (2)
  1. BUPROPION [Suspect]
     Active Substance: BUPROPION
     Dates: start: 20210210
  2. LABETALOL HYDROCHLORIDE [Suspect]
     Active Substance: LABETALOL HYDROCHLORIDE
     Dates: start: 20211018

REACTIONS (7)
  - Breech presentation [None]
  - Twin pregnancy [None]
  - Premature baby [None]
  - Caesarean section [None]
  - Maternal drugs affecting foetus [None]
  - Neonatal aspiration [None]
  - Neonatal hypoxia [None]

NARRATIVE: CASE EVENT DATE: 20220112
